FAERS Safety Report 6158806-7 (Version None)
Quarter: 2009Q2

REPORT INFORMATION
  Report Type: 
  Country: None (occurrence: None)
  Receive Date: 20090414
  Receipt Date: 20081212
  Transmission Date: 20091009
  Serious: Yes (Hospitalization)
  Sender: FDA-Public Use
  Company Number: 2008-07335

PATIENT
  Age: 57 Year
  Sex: Female

DRUGS (1)
  1. FERRLECIT [Suspect]
     Indication: IRON DEFICIENCY ANAEMIA
     Dosage: 250 MG, OVER 2 HOURS, INTRAVENOUS
     Route: 042
     Dates: start: 20081121, end: 20081121

REACTIONS (4)
  - ANAPHYLACTOID REACTION [None]
  - ANGIOEDEMA [None]
  - HYPOTENSION [None]
  - PHARYNGEAL OEDEMA [None]
